FAERS Safety Report 10240565 (Version 1)
Quarter: 2014Q2

REPORT INFORMATION
  Report Type: Spontaneous
  Country: SE (occurrence: DE)
  Receive Date: 20140617
  Receipt Date: 20140617
  Transmission Date: 20141212
  Serious: Yes (Other)
  Sender: FDA-Public Use
  Company Number: SE-RANBAXY-2014RR-82455

PATIENT
  Age: 41 Year
  Sex: Male

DRUGS (2)
  1. IBUPROFEN [Suspect]
     Indication: PRODUCT USED FOR UNKNOWN INDICATION
     Dosage: UNK
     Route: 065
  2. METAMIZOLE [Suspect]
     Indication: PRODUCT USED FOR UNKNOWN INDICATION
     Dosage: UNK
     Route: 065

REACTIONS (10)
  - Renal failure acute [Recovering/Resolving]
  - Thrombocytopenia [Unknown]
  - Thrombotic thrombocytopenic purpura [Unknown]
  - Disseminated intravascular coagulation [Unknown]
  - Paraesthesia [Unknown]
  - Blood lactate dehydrogenase increased [Unknown]
  - Dysphonia [Unknown]
  - Haemolysis [Unknown]
  - Hypoacusis [Unknown]
  - Anaemia [Unknown]
